FAERS Safety Report 22541484 (Version 1)
Quarter: 2023Q2

REPORT INFORMATION
  Report Type: Spontaneous
  Country: US (occurrence: None)
  Receive Date: 20230608
  Receipt Date: 20230608
  Transmission Date: 20230722
  Serious: No
  Sender: FDA-Public Use
  Company Number: None

PATIENT
  Age: 42 Year
  Sex: Male

DRUGS (2)
  1. AMBRISENTAN [Suspect]
     Active Substance: AMBRISENTAN
     Indication: Pulmonary arterial hypertension
     Dosage: FREQUENCY : DAILY;?
     Route: 048
  2. XANAX [Concomitant]
     Active Substance: ALPRAZOLAM

REACTIONS (2)
  - Muscle spasms [None]
  - Therapy interrupted [None]

NARRATIVE: CASE EVENT DATE: 20230607
